FAERS Safety Report 7948676-6 (Version None)
Quarter: 2011Q4

REPORT INFORMATION
  Report Type: 
  Country: None (occurrence: None)
  Receive Date: 20111130
  Receipt Date: 20111130
  Transmission Date: 20120403
  Serious: Yes (Other)
  Sender: FDA-Public Use
  Company Number: None

PATIENT
  Sex: Female

DRUGS (1)
  1. MORPHINE [Suspect]
     Indication: CHEST PAIN
     Dosage: 2MG
     Route: 042
     Dates: start: 20111123, end: 20111123

REACTIONS (3)
  - ACUTE MYOCARDIAL INFARCTION [None]
  - ERYTHEMA [None]
  - PRURITUS [None]
